FAERS Safety Report 5283395-9 (Version None)
Quarter: 2007Q2

REPORT INFORMATION
  Report Type: 
  Country: None (occurrence: None)
  Receive Date: 20070402
  Receipt Date: 20070326
  Transmission Date: 20071010
  Serious: Yes (Hospitalization)
  Sender: FDA-Public Use
  Company Number: FR-AVENTIS-200711098FR

PATIENT
  Age: 82 Year
  Sex: Male

DRUGS (10)
  1. LASILIX                            /00032601/ [Suspect]
     Route: 042
     Dates: start: 20070113, end: 20070113
  2. ZANIDIP [Concomitant]
  3. XATRAL                             /00975301/ [Concomitant]
  4. VITAMIN B1 AND B6 [Concomitant]
  5. NEURONTIN [Concomitant]
  6. PROZAC [Concomitant]
  7. TARDYFERON                         /00023503/ [Concomitant]
  8. MUCOMYST                           /00082801/ [Concomitant]
  9. SERETIDE [Concomitant]
  10. IZILOX [Concomitant]
     Dates: start: 20070103

REACTIONS (1)
  - ANAPHYLACTOID REACTION [None]
